FAERS Safety Report 15537901 (Version 4)
Quarter: 2019Q1

REPORT INFORMATION
  Report Type: Spontaneous
  Country: US (occurrence: US)
  Receive Date: 20181022
  Receipt Date: 20190330
  Transmission Date: 20190417
  Serious: Yes (Death, Hospitalization)
  Sender: FDA-Public Use
  Company Number: US-JNJFOC-20181017415

PATIENT
  Age: 69 Year
  Sex: Male
  Weight: 113.4 kg

DRUGS (8)
  1. XARELTO [Suspect]
     Active Substance: RIVAROXABAN
     Indication: DEEP VEIN THROMBOSIS
     Route: 048
     Dates: start: 20170217, end: 20170301
  2. XARELTO [Suspect]
     Active Substance: RIVAROXABAN
     Indication: THROMBOSIS
     Route: 048
     Dates: start: 20170217, end: 20170301
  3. XARELTO [Suspect]
     Active Substance: RIVAROXABAN
     Indication: SUPRAVENTRICULAR TACHYCARDIA
     Route: 048
     Dates: start: 20170217, end: 20170301
  4. XARELTO [Suspect]
     Active Substance: RIVAROXABAN
     Indication: PERIPHERAL VENOUS DISEASE
     Route: 048
     Dates: start: 20170217, end: 20170301
  5. XARELTO [Suspect]
     Active Substance: RIVAROXABAN
     Indication: THROMBOSIS
     Route: 048
     Dates: start: 20170215, end: 20170217
  6. XARELTO [Suspect]
     Active Substance: RIVAROXABAN
     Indication: SUPRAVENTRICULAR TACHYCARDIA
     Route: 048
     Dates: start: 20170215, end: 20170217
  7. XARELTO [Suspect]
     Active Substance: RIVAROXABAN
     Indication: DEEP VEIN THROMBOSIS
     Route: 048
     Dates: start: 20170215, end: 20170217
  8. XARELTO [Suspect]
     Active Substance: RIVAROXABAN
     Indication: PERIPHERAL VENOUS DISEASE
     Route: 048
     Dates: start: 20170215, end: 20170217

REACTIONS (1)
  - Haemorrhagic stroke [Fatal]

NARRATIVE: CASE EVENT DATE: 20170223
